FAERS Safety Report 8897441 (Version 1)
Quarter: 2012Q4

REPORT INFORMATION
  Report Type: Spontaneous
  Country: US (occurrence: None)
  Receive Date: 20121108
  Receipt Date: 20121108
  Transmission Date: 20130627
  Serious: Yes (Hospitalization, Other)
  Sender: FDA-Public Use
  Company Number: None

PATIENT
  Age: 29 Year
  Sex: Female
  Weight: 72.58 kg

DRUGS (2)
  1. LEVOFLOXACIN [Suspect]
     Indication: SINUS INFECTION
     Route: 048
     Dates: start: 20120915, end: 20120917
  2. LEVOFLOXACIN [Suspect]
     Indication: BRONCHITIS
     Route: 048
     Dates: start: 20120915, end: 20120917

REACTIONS (17)
  - Anxiety [None]
  - Panic reaction [None]
  - Confusional state [None]
  - Insomnia [None]
  - Pain in extremity [None]
  - Hypoaesthesia [None]
  - Hypoaesthesia [None]
  - Hypoaesthesia [None]
  - Eye disorder [None]
  - Facial pain [None]
  - Headache [None]
  - Neck pain [None]
  - Musculoskeletal pain [None]
  - Muscle spasms [None]
  - Generalised anxiety disorder [None]
  - Migraine [None]
  - Pain [None]
